FAERS Safety Report 16853498 (Version 1)
Quarter: 2019Q3

REPORT INFORMATION
  Report Type: Spontaneous
  Country: US (occurrence: US)
  Receive Date: 20190802
  Receipt Date: 20190802
  Transmission Date: 20191005
  Serious: No
  Sender: FDA-Public Use
  Company Number: None

PATIENT
  Age: 64 Year
  Sex: Female

DRUGS (11)
  1. BUSULFAN. [Suspect]
     Active Substance: BUSULFAN
     Indication: BONE MARROW TRANSPLANT
     Route: 042
     Dates: start: 20190415, end: 20190416
  2. ACETAMINOPHEN. [Concomitant]
     Active Substance: ACETAMINOPHEN
  3. HYDROMORPHONE [Concomitant]
     Active Substance: HYDROMORPHONE
  4. FILGRASTIM [Concomitant]
     Active Substance: FILGRASTIM
  5. FLUCONAZOLE. [Concomitant]
     Active Substance: FLUCONAZOLE
  6. ACYCLOVIR. [Concomitant]
     Active Substance: ACYCLOVIR
  7. BUSULFAN. [Suspect]
     Active Substance: BUSULFAN
     Indication: ALLOGENIC STEM CELL TRANSPLANTATION
  8. CHLORHEXADINE [Concomitant]
     Active Substance: CHLORHEXIDINE
  9. MAGNESIUM [Concomitant]
     Active Substance: MAGNESIUM
  10. CEFEPIME [Concomitant]
     Active Substance: CEFEPIME HYDROCHLORIDE
  11. FLUORIDE TOPICAL [Concomitant]

REACTIONS (2)
  - Allogenic stem cell transplantation [None]
  - Hyperbilirubinaemia [None]

NARRATIVE: CASE EVENT DATE: 20190427
